FAERS Safety Report 9182162 (Version 1)
Quarter: 2012Q4

REPORT INFORMATION
  Report Type: 
  Country: US (occurrence: US)
  Receive Date: 20121030
  Receipt Date: 20121030
  Transmission Date: 20130627
  Serious: No
  Sender: FDA-Public Use
  Company Number: US-VERTEX PHARMACEUTICAL INC.-2012-023698

PATIENT
  Age: 65 None
  Sex: Female

DRUGS (7)
  1. VX-950 [Suspect]
     Indication: HEPATITIS C
     Dosage: 750 mg, tid
     Route: 048
  2. RIBAPAK [Concomitant]
     Indication: HEPATITIS C
     Dosage: 1000 mg, qd
  3. PEGASYS [Concomitant]
  4. VITAMIN D /00107901/ [Concomitant]
     Dosage: 1000 ut, UNK
  5. LEXAPRO [Concomitant]
     Dosage: 5 mg, UNK
  6. METHIMAZOLE [Concomitant]
     Dosage: 5 mg, UNK
  7. AZOR                               /00595201/ [Concomitant]
     Dosage: 10-20 mg

REACTIONS (2)
  - Oral herpes [Unknown]
  - Rash generalised [Unknown]
